FAERS Safety Report 23766321 (Version 1)
Quarter: 2024Q2

REPORT INFORMATION
  Report Type: Spontaneous
  Country: US (occurrence: None)
  Receive Date: 20240422
  Receipt Date: 20240422
  Transmission Date: 20240716
  Serious: No
  Sender: FDA-Public Use
  Company Number: 2024A078283

PATIENT
  Sex: Female

DRUGS (1)
  1. FARXIGA [Suspect]
     Active Substance: DAPAGLIFLOZIN PROPANEDIOL
     Route: 048

REACTIONS (6)
  - Abdominal discomfort [Unknown]
  - Nausea [Unknown]
  - Headache [Unknown]
  - Eructation [Unknown]
  - Vomiting [Unknown]
  - Fatigue [Unknown]
